FAERS Safety Report 9229629 (Version 1)
Quarter: 2013Q2

REPORT INFORMATION
  Report Type: Spontaneous
  Country: US (occurrence: US)
  Receive Date: 20130415
  Receipt Date: 20130415
  Transmission Date: 20140414
  Serious: No
  Sender: FDA-Public Use
  Company Number: US-009507513-1304USA001207

PATIENT
  Age: 84 Year
  Sex: Female

DRUGS (2)
  1. PROVENTIL [Suspect]
     Indication: DYSPNOEA
     Dosage: 2 PUFFS EVERY 6 HOURS (ALSO REPORTED AS ^TWICE A DAY^)
     Route: 055
     Dates: start: 20130308
  2. TESSALON PERLES [Concomitant]

REACTIONS (3)
  - Wheezing [Not Recovered/Not Resolved]
  - Cough [Not Recovered/Not Resolved]
  - Drug dose omission [Unknown]
